FAERS Safety Report 5784232-6 (Version None)
Quarter: 2008Q2

REPORT INFORMATION
  Report Type: 
  Country: None (occurrence: None)
  Receive Date: 20080624
  Receipt Date: 20070518
  Transmission Date: 20081010
  Serious: No
  Sender: FDA-Public Use
  Company Number: US-ASTRAZENECA-2007UW12422

PATIENT
  Sex: Female

DRUGS (1)
  1. PULMICORT FLEXHALER [Suspect]
     Indication: TRACHEOBRONCHITIS
     Route: 055
     Dates: start: 20070518

REACTIONS (3)
  - DIZZINESS [None]
  - FALL [None]
  - HEADACHE [None]
